FAERS Safety Report 20203905 (Version 2)
Quarter: 2022Q2

REPORT INFORMATION
  Report Type: Report from Study
  Country: US (occurrence: None)
  Receive Date: 20211219
  Receipt Date: 20220627
  Transmission Date: 20220721
  Serious: Yes (Other)
  Sender: FDA-Public Use
  Company Number: US-Merck Healthcare KGaA-9287153

PATIENT
  Age: 55 Year
  Sex: Female

DRUGS (1)
  1. REBIF [Suspect]
     Active Substance: INTERFERON BETA-1A
     Indication: Multiple sclerosis
     Dosage: REBIF PREFILLED SYRINGE
     Route: 058
     Dates: start: 20090925

REACTIONS (4)
  - Overweight [Unknown]
  - Type 2 diabetes mellitus [Unknown]
  - Hepatic cirrhosis [Unknown]
  - Non-alcoholic fatty liver [Unknown]

NARRATIVE: CASE EVENT DATE: 20211001
